FAERS Safety Report 18235928 (Version 4)
Quarter: 2021Q2

REPORT INFORMATION
  Report Type: Spontaneous
  Country: US (occurrence: US)
  Receive Date: 20200905
  Receipt Date: 20210423
  Transmission Date: 20210717
  Serious: Yes (Hospitalization, Other)
  Sender: FDA-Public Use
  Company Number: US-TEVA-2020-US-1825075

PATIENT
  Age: 54 Year
  Sex: Female
  Weight: 109 kg

DRUGS (23)
  1. VALSARTAN W/HYDROCHLOROTHIAZIDE ACTAVIS [Suspect]
     Active Substance: HYDROCHLOROTHIAZIDE\VALSARTAN
     Indication: HYPERTENSION
     Dosage: 80?12.5 MG, 90 DAY SUPPLY
     Route: 048
     Dates: start: 20131209, end: 20140228
  2. AMLODIPINE BESYLATE. [Concomitant]
     Active Substance: AMLODIPINE BESYLATE
     Dates: start: 20110907, end: 20111004
  3. AMLODIPINE BESYLATE. [Concomitant]
     Active Substance: AMLODIPINE BESYLATE
     Dates: start: 20180722, end: 20190218
  4. TRIAMTERENE HCTZ [Concomitant]
     Active Substance: HYDROCHLOROTHIAZIDE\TRIAMTERENE
     Dosage: 37.5/25MG
     Dates: start: 20110702, end: 20110804
  5. NAPROXEN. [Concomitant]
     Active Substance: NAPROXEN
     Route: 048
  6. VALSARTAN/HYDROCHLOROTHIAZIDE MYLAN [Suspect]
     Active Substance: HYDROCHLOROTHIAZIDE\VALSARTAN
     Dosage: 80?12.5 MG, 90 DAY SUPPLY
     Route: 048
     Dates: start: 20130612, end: 20131104
  7. AMLODIPINE BESYLATE. [Concomitant]
     Active Substance: AMLODIPINE BESYLATE
     Dates: start: 20120625
  8. AMLODIPINE BESYLATE. [Concomitant]
     Active Substance: AMLODIPINE BESYLATE
     Dates: start: 20130913, end: 20140519
  9. TRIAMTERENE HCTZ [Concomitant]
     Active Substance: HYDROCHLOROTHIAZIDE\TRIAMTERENE
     Indication: HYPERTENSION
     Dosage: 37.5?25 MG
     Dates: start: 20110825, end: 20120527
  10. PEPCID [Concomitant]
     Active Substance: FAMOTIDINE
     Indication: GASTROOESOPHAGEAL REFLUX DISEASE
     Dosage: PRN
     Route: 048
  11. POTASSIUM CHLORIDE. [Concomitant]
     Active Substance: POTASSIUM CHLORIDE
     Dosage: 20MEQ
     Route: 048
  12. AMLODIPINE BESYLATE. [Concomitant]
     Active Substance: AMLODIPINE BESYLATE
     Dates: start: 20140927, end: 20150526
  13. AMLODIPINE BESYLATE. [Concomitant]
     Active Substance: AMLODIPINE BESYLATE
     Dates: start: 20160825, end: 20160923
  14. HYDROCHLOROTHIAZIDE. [Concomitant]
     Active Substance: HYDROCHLOROTHIAZIDE
     Indication: HYPERTENSION
     Dates: start: 20150311, end: 20150705
  15. ALBUTEROL HFA [Concomitant]
     Active Substance: ALBUTEROL SULFATE
     Indication: ASTHMA
     Dosage: 90MCG/INHALATION, 2 PUFFS
  16. TRIAMTERENE HCTZ [Concomitant]
     Active Substance: HYDROCHLOROTHIAZIDE\TRIAMTERENE
     Dosage: 37.5/25MG
     Dates: start: 20110907, end: 20111004
  17. TRIAMTERENE HCTZ [Concomitant]
     Active Substance: HYDROCHLOROTHIAZIDE\TRIAMTERENE
     Dosage: 37.5?25 MG
     Dates: start: 20120825, end: 20121109
  18. ALEVE [Concomitant]
     Active Substance: NAPROXEN SODIUM
     Indication: PAIN
     Dates: start: 20100101
  19. VALSARTAN/HYDROCHLOROTHIAZIDE MYLAN [Suspect]
     Active Substance: HYDROCHLOROTHIAZIDE\VALSARTAN
     Indication: HYPERTENSION
     Dosage: 80?12.5 MG, 90 DAY SUPPLY
     Route: 048
     Dates: start: 20140414, end: 20150122
  20. AMLODIPINE BESYLATE. [Concomitant]
     Active Substance: AMLODIPINE BESYLATE
     Indication: HYPERTENSION
     Dates: start: 20100203, end: 20100805
  21. AMLODIPINE BESYLATE. [Concomitant]
     Active Substance: AMLODIPINE BESYLATE
     Dates: start: 20111121, end: 20120527
  22. TRIAMTERENE HCTZ [Concomitant]
     Active Substance: HYDROCHLOROTHIAZIDE\TRIAMTERENE
     Dosage: 37.5/25MG
     Dates: start: 20100328, end: 20100928
  23. FAMOTIDINE. [Concomitant]
     Active Substance: FAMOTIDINE
     Dosage: PRN
     Route: 048

REACTIONS (1)
  - Renal cancer [Recovered/Resolved]
